FAERS Safety Report 22370937 (Version 2)
Quarter: 2023Q2

REPORT INFORMATION
  Report Type: Spontaneous
  Country: CN (occurrence: CN)
  Receive Date: 20230526
  Receipt Date: 20230605
  Transmission Date: 20230721
  Serious: Yes (Death, Life-Threatening, Hospitalization, Other)
  Sender: FDA-Public Use
  Company Number: CN-Accord-359352

PATIENT
  Age: 63 Year
  Sex: Male

DRUGS (6)
  1. TIGECYCLINE [Suspect]
     Active Substance: TIGECYCLINE
     Indication: Infection prophylaxis
     Dosage: Q12 HOURS
  2. ATORVASTATIN [Suspect]
     Active Substance: ATORVASTATIN
     Indication: Lacunar infarction
     Dosage: QN PO
     Route: 048
  3. FLUCONAZOLE [Suspect]
     Active Substance: FLUCONAZOLE
     Indication: Infection prophylaxis
     Dosage: QD INTRAVENOUS DRIP
     Route: 042
  4. CEFOPERAZONE\SULBACTAM [Concomitant]
     Active Substance: CEFOPERAZONE\SULBACTAM
     Indication: Infection prophylaxis
     Dosage: Q8 HOURS
  5. CLOPIDOGREL [Concomitant]
     Active Substance: CLOPIDOGREL BISULFATE
     Indication: Antiplatelet therapy
  6. MEROPENEM [Concomitant]
     Active Substance: MEROPENEM
     Indication: Infection prophylaxis
     Dosage: 0.5Q6 HOUR

REACTIONS (3)
  - Hepatic failure [Fatal]
  - Left ventricular failure [Fatal]
  - Renal failure [Fatal]
